FAERS Safety Report 7414553 (Version 7)
Quarter: 2013Q1

REPORT INFORMATION
  Report Type: Report from Study
  Country: US (occurrence: US)
  Receive Date: 20100609
  Receipt Date: 20130328
  Transmission Date: 20140127
  Serious: Yes (Hospitalization)
  Sender: FDA-Public Use
  Company Number: US-ABBOTT-10P-163-0648581-00

PATIENT
  Age: 51 Year
  Sex: Female
  Weight: 169.8 kg

DRUGS (5)
  1. HUMIRA [Suspect]
     Indication: PSORIASIS
     Route: 058
     Dates: start: 20091105
  2. HUMIRA [Suspect]
     Route: 058
     Dates: start: 20091205
  3. HUMIRA [Suspect]
     Route: 058
     Dates: start: 20100322
  4. METHOTREXATE [Concomitant]
     Indication: PSORIASIS
     Dates: start: 20100528, end: 20100531
  5. CLOBETASOL [Concomitant]
     Indication: PSORIASIS
     Dosage: 1 APPLICATION, AS REQUIRED
     Route: 061
     Dates: start: 200809

REACTIONS (1)
  - Dermatitis exfoliative [Recovered/Resolved]
